FAERS Safety Report 23299461 (Version 2)
Quarter: 2023Q4

REPORT INFORMATION
  Report Type: Spontaneous
  Country: US (occurrence: US)
  Receive Date: 20231215
  Receipt Date: 20231218
  Transmission Date: 20240110
  Serious: Yes (Hospitalization)
  Sender: FDA-Public Use
  Company Number: US-BRISTOL-MYERS SQUIBB COMPANY-2023-180262

PATIENT
  Age: 77 Year
  Sex: Female
  Weight: 83.46 kg

DRUGS (1)
  1. THALOMID [Suspect]
     Active Substance: THALIDOMIDE
     Indication: Haemorrhage prophylaxis
     Route: 048

REACTIONS (2)
  - Constipation [Unknown]
  - Off label use [Unknown]
